FAERS Safety Report 11977664 (Version 3)
Quarter: 2018Q3

REPORT INFORMATION
  Report Type: Report from Study
  Country: US (occurrence: US)
  Receive Date: 20160129
  Receipt Date: 20180907
  Transmission Date: 20181010
  Serious: Yes (Hospitalization, Other)
  Sender: FDA-Public Use
  Company Number: US-SA-2015SA102253

PATIENT
  Age: 24 Year
  Sex: Male

DRUGS (2)
  1. ALEMTUZUMAB [Suspect]
     Active Substance: ALEMTUZUMAB
     Dosage: 12 MG,QD
     Route: 041
     Dates: start: 20160627, end: 20160629
  2. ALEMTUZUMAB [Suspect]
     Active Substance: ALEMTUZUMAB
     Indication: MULTIPLE SCLEROSIS
     Dosage: 12 MG,QD
     Route: 041
     Dates: start: 20150622, end: 20150626

REACTIONS (13)
  - Blindness [Unknown]
  - Abdominal pain upper [Unknown]
  - Rash [Unknown]
  - Coordination abnormal [Unknown]
  - Throat irritation [Not Recovered/Not Resolved]
  - Cardiac flutter [Unknown]
  - Herpes zoster [Not Recovered/Not Resolved]
  - Atypical pneumonia [Unknown]
  - Chest discomfort [Not Recovered/Not Resolved]
  - Multiple sclerosis [Unknown]
  - Headache [Unknown]
  - Heart rate increased [Unknown]
  - Weight increased [Not Recovered/Not Resolved]

NARRATIVE: CASE EVENT DATE: 2015
